FAERS Safety Report 7593791-2 (Version None)
Quarter: 2011Q3

REPORT INFORMATION
  Report Type: 
  Country: None (occurrence: None)
  Receive Date: 20110706
  Receipt Date: 20110628
  Transmission Date: 20111222
  Serious: Yes (Other)
  Sender: FDA-Public Use
  Company Number: JP-NOVOPROD-331010

PATIENT
  Age: 79 Year
  Sex: Male
  Weight: 64 kg

DRUGS (4)
  1. WARFARIN SODIUM [Concomitant]
     Dosage: 3.75 MG, QD
     Route: 048
  2. GASTER                             /00661201/ [Concomitant]
     Dosage: 20 MG, QD
     Route: 048
  3. CIBENOL [Concomitant]
     Dosage: 100 MG, QD
     Route: 048
  4. VICTOZA [Suspect]
     Indication: TYPE 2 DIABETES MELLITUS
     Dosage: 0.9 MG, QD
     Route: 058
     Dates: start: 20110613, end: 20110624

REACTIONS (1)
  - LIVER FUNCTION TEST ABNORMAL [None]
